FAERS Safety Report 6707243-2 (Version None)
Quarter: 2010Q2

REPORT INFORMATION
  Report Type: 
  Country: None (occurrence: None)
  Receive Date: 20100429
  Receipt Date: 20100416
  Transmission Date: 20101027
  Serious: Yes (Other)
  Sender: FDA-Public Use
  Company Number: 2010SP022874

PATIENT

DRUGS (1)
  1. IMPLANON [Suspect]
     Indication: DRUG EXPOSURE DURING PREGNANCY
     Dosage: TRPL
     Route: 064

REACTIONS (4)
  - BIOPSY CHORIONIC VILLOUS ABNORMAL [None]
  - MATERNAL DRUGS AFFECTING FOETUS [None]
  - PREGNANCY WITH IMPLANT CONTRACEPTIVE [None]
  - ULTRASOUND ANTENATAL SCREEN ABNORMAL [None]
